FAERS Safety Report 8191030-5 (Version None)
Quarter: 2012Q1

REPORT INFORMATION
  Report Type: 
  Country: None (occurrence: None)
  Receive Date: 20120307
  Receipt Date: 20120224
  Transmission Date: 20120608
  Serious: Yes (Other)
  Sender: FDA-Public Use
  Company Number: DE-FRI-1000028650

PATIENT
  Sex: Female

DRUGS (6)
  1. TIAPRIDEX [Suspect]
     Indication: MENTAL DISORDER
     Dates: start: 20120214
  2. PANCREATIN TRIPLE STRENGTH CAP [Concomitant]
  3. MIRTAZAPINE [Concomitant]
  4. CAPVAL [Concomitant]
  5. FOSFOMYCIN [Suspect]
     Indication: CYSTITIS
     Route: 048
     Dates: start: 20120214, end: 20120214
  6. VALPROATE SODIUM [Suspect]
     Indication: MAJOR DEPRESSION
     Dosage: 1500 MG
     Dates: start: 19730101

REACTIONS (2)
  - ASTHENIA [None]
  - ARRHYTHMIA [None]
